FAERS Safety Report 5506555-8 (Version None)
Quarter: 2007Q4

REPORT INFORMATION
  Report Type: 
  Country: None (occurrence: None)
  Receive Date: 20071105
  Receipt Date: 20071024
  Transmission Date: 20080405
  Serious: Yes (Hospitalization)
  Sender: FDA-Public Use
  Company Number: B0493768A

PATIENT
  Age: 77 Year
  Sex: Female

DRUGS (9)
  1. AVANDIA [Suspect]
     Indication: DIABETES MELLITUS
     Dosage: 4MG TWICE PER DAY
     Route: 048
     Dates: end: 20051222
  2. DOXAZOSIN MESYLATE [Concomitant]
     Indication: HYPERTENSION
     Dosage: 4MG PER DAY
     Route: 048
  3. FERROUS GLUCONATE [Concomitant]
     Dosage: 300MG TWICE PER DAY
     Route: 048
  4. FUROSEMIDE [Concomitant]
     Route: 048
  5. METFORMIN [Concomitant]
     Route: 048
  6. RAMIPRIL [Concomitant]
     Indication: HYPERTENSION
     Dosage: 1.25MG SEE DOSAGE TEXT
     Route: 048
  7. SIMVASTATIN [Concomitant]
     Dosage: 10MG PER DAY
     Route: 048
  8. FUROSEMIDE [Concomitant]
     Route: 042
  9. GLICLAZIDE [Concomitant]

REACTIONS (2)
  - CARDIAC FAILURE [None]
  - DYSPNOEA [None]
